FAERS Safety Report 9349953 (Version 2)
Quarter: 2013Q3

REPORT INFORMATION
  Report Type: Report from Study
  Country: BR (occurrence: BR)
  Receive Date: 20130614
  Receipt Date: 20130815
  Transmission Date: 20140515
  Serious: Yes (Death, Hospitalization, Other)
  Sender: FDA-Public Use
  Company Number: PHHY2013BR059743

PATIENT
  Sex: Male

DRUGS (1)
  1. FORASEQ [Suspect]
     Indication: EMPHYSEMA
     Dosage: UNK UKN, BID

REACTIONS (4)
  - Death [Fatal]
  - Lung neoplasm malignant [Recovering/Resolving]
  - Weight decreased [Recovering/Resolving]
  - Nosocomial infection [Recovering/Resolving]
